FAERS Safety Report 11509817 (Version 1)
Quarter: 2015Q3

REPORT INFORMATION
  Report Type: Spontaneous
  Country: US (occurrence: US)
  Receive Date: 20150915
  Receipt Date: 20150915
  Transmission Date: 20151125
  Serious: No
  Sender: FDA-Public Use
  Company Number: US-JNJFOC-20150811015

PATIENT
  Sex: Male
  Weight: 79.38 kg

DRUGS (1)
  1. TYLENOL WITH CODEINE [Suspect]
     Active Substance: ACETAMINOPHEN\CODEINE PHOSPHATE
     Indication: PAIN
     Route: 048
     Dates: start: 2007, end: 2007

REACTIONS (7)
  - Emotional distress [Recovered/Resolved]
  - Mood altered [Recovered/Resolved]
  - Feeling abnormal [Recovered/Resolved]
  - Blunted affect [Recovered/Resolved]
  - Fatigue [Recovered/Resolved]
  - Trance [Recovered/Resolved]
  - Malaise [Recovered/Resolved]

NARRATIVE: CASE EVENT DATE: 2007
